FAERS Safety Report 15779733 (Version 2)
Quarter: 2019Q1

REPORT INFORMATION
  Report Type: Report from Study
  Country: None (occurrence: US)
  Receive Date: 20190101
  Receipt Date: 20190117
  Transmission Date: 20190417
  Serious: No
  Sender: FDA-Public Use
  Company Number: US-ABBVIE-18K-163-2606252-00

PATIENT
  Sex: Female
  Weight: 90.8 kg

DRUGS (3)
  1. HUMIRA [Suspect]
     Active Substance: ADALIMUMAB
     Indication: UVEITIS
     Route: 058
     Dates: start: 201806
  2. PRAVASTATIN. [Concomitant]
     Active Substance: PRAVASTATIN
     Indication: BLOOD CHOLESTEROL
  3. LEVOTHYROXINE. [Concomitant]
     Active Substance: LEVOTHYROXINE
     Indication: HYPOTHYROIDISM

REACTIONS (10)
  - Middle ear effusion [Not Recovered/Not Resolved]
  - Urinary tract infection [Not Recovered/Not Resolved]
  - Constipation [Not Recovered/Not Resolved]
  - Contusion [Unknown]
  - Balance disorder [Not Recovered/Not Resolved]
  - Sinus congestion [Recovering/Resolving]
  - Dry skin [Recovering/Resolving]
  - Cystitis [Unknown]
  - Onychoclasis [Unknown]
  - Fall [Recovered/Resolved]

NARRATIVE: CASE EVENT DATE: 201811
